FAERS Safety Report 8684504 (Version 2)
Quarter: 2012Q4

REPORT INFORMATION
  Report Type: 
  Country: US (occurrence: US)
  Receive Date: 20120726
  Receipt Date: 20121004
  Transmission Date: 20130627
  Serious: Yes (Hospitalization, Other)
  Sender: FDA-Public Use
  Company Number: US-ASTRAZENECA-2012SE50418

PATIENT
  Age: 53 Year
  Sex: Male
  Weight: 93.9 kg

DRUGS (4)
  1. NEXIUM [Suspect]
     Indication: GASTROOESOPHAGEAL REFLUX DISEASE
     Route: 048
  2. SYMBICORT PMDI [Suspect]
     Indication: DYSPNOEA
     Dosage: 160/4.5, TWO PUFFS TWICE PER DAY
     Route: 055
     Dates: start: 201108
  3. CRESTOR [Suspect]
     Indication: BLOOD CHOLESTEROL INCREASED
     Route: 048
  4. PREDNISONE [Concomitant]

REACTIONS (2)
  - Lung neoplasm malignant [Unknown]
  - Pulmonary oedema [Unknown]
